FAERS Safety Report 21580792 (Version 1)
Quarter: 2022Q4

REPORT INFORMATION
  Report Type: Report from Study
  Country: US (occurrence: US)
  Receive Date: 20221111
  Receipt Date: 20221111
  Transmission Date: 20230113
  Serious: No
  Sender: FDA-Public Use
  Company Number: US-ABBVIE-4160471

PATIENT
  Sex: Male

DRUGS (3)
  1. SKYRIZI [Suspect]
     Active Substance: RISANKIZUMAB-RZAA
     Indication: Psoriasis
     Route: 058
     Dates: start: 20220411
  2. Covid-19 vaccine [Concomitant]
     Indication: COVID-19 immunisation
     Dosage: 1 IN ONCE
     Route: 030
  3. Covid-19 vaccine [Concomitant]
     Indication: COVID-19 immunisation
     Dosage: 1 IN ONCE?BOOSTER VACCINE
     Route: 030

REACTIONS (1)
  - Gastroenteritis viral [Recovered/Resolved]

NARRATIVE: CASE EVENT DATE: 20220101
